FAERS Safety Report 17023809 (Version 3)
Quarter: 2020Q1

REPORT INFORMATION
  Report Type: Report from Study
  Country: US (occurrence: US)
  Receive Date: 20191113
  Receipt Date: 20200213
  Transmission Date: 20200409
  Serious: Yes (Hospitalization)
  Sender: FDA-Public Use
  Company Number: US-BIOGEN-2019BI00805886

PATIENT
  Age: 55 Year
  Sex: Male

DRUGS (3)
  1. TYSABRI [Suspect]
     Active Substance: NATALIZUMAB
     Route: 042
     Dates: end: 20190729
  2. TYSABRI [Suspect]
     Active Substance: NATALIZUMAB
     Dosage: STARTER DOSE
     Route: 042
     Dates: start: 20181024
  3. TYSABRI [Suspect]
     Active Substance: NATALIZUMAB
     Indication: MULTIPLE SCLEROSIS
     Route: 042
     Dates: start: 20180914

REACTIONS (2)
  - Abscess limb [Unknown]
  - Cellulitis [Unknown]

NARRATIVE: CASE EVENT DATE: 20190930
